FAERS Safety Report 6532373-8 (Version None)
Quarter: 2010Q1

REPORT INFORMATION
  Report Type: 
  Country: None (occurrence: None)
  Receive Date: 20100108
  Receipt Date: 20091228
  Transmission Date: 20100710
  Serious: Yes (Hospitalization)
  Sender: FDA-Public Use
  Company Number: NL-MEDIMMUNE-MEDI-0009861

PATIENT
  Sex: Male

DRUGS (2)
  1. SYNAGIS [Suspect]
     Dates: start: 20091105, end: 20091105
  2. SYNAGIS [Suspect]
     Dates: start: 20091203

REACTIONS (5)
  - DIARRHOEA [None]
  - FLUID INTAKE REDUCED [None]
  - GASTROINTESTINAL PAIN [None]
  - PULMONARY OEDEMA [None]
  - VOMITING [None]
